FAERS Safety Report 24562754 (Version 1)
Quarter: 2024Q4

REPORT INFORMATION
  Report Type: Spontaneous
  Country: NL (occurrence: NL)
  Receive Date: 20241029
  Receipt Date: 20241029
  Transmission Date: 20250115
  Serious: Yes (Hospitalization, Other)
  Sender: SANDOZ
  Company Number: NL-002147023-GXKR2008NL03428

PATIENT
  Age: 30 Year
  Sex: Female

DRUGS (7)
  1. IMURAN [Suspect]
     Active Substance: AZATHIOPRINE
     Indication: Immunosuppression
     Dosage: 1 DF, UNK
     Route: 065
  2. PREDNISOLONE [Suspect]
     Active Substance: PREDNISOLONE
     Indication: Immunosuppression
     Dosage: UNK
     Route: 065
  3. TACROLIMUS [Suspect]
     Active Substance: TACROLIMUS
     Indication: Immunosuppression
     Dosage: 1 DF, UNK
     Route: 065
  4. CYCLOSPORINE [Suspect]
     Active Substance: CYCLOSPORINE
     Indication: Immunosuppression
     Dosage: 1 DF, UNK
     Route: 065
  5. HEPATITIS B IMMUNE GLOBULIN [Concomitant]
     Active Substance: HUMAN HEPATITIS B VIRUS IMMUNE GLOBULIN
     Indication: Prophylaxis
     Dosage: DOSAGE FORM
     Route: 042
     Dates: start: 19990212
  6. LAMIVUDINE [Concomitant]
     Active Substance: LAMIVUDINE
     Dosage: 100 MG
     Route: 065
  7. LAMIVUDINE [Concomitant]
     Active Substance: LAMIVUDINE
     Indication: Prophylaxis
     Dosage: 100 MG, UNK
     Route: 065

REACTIONS (14)
  - Hepatitis E [Recovered/Resolved]
  - Liver function test abnormal [Recovering/Resolving]
  - Hepatic cirrhosis [Recovering/Resolving]
  - Jaundice [Recovering/Resolving]
  - Ascites [Recovering/Resolving]
  - Hepatic fibrosis [Recovering/Resolving]
  - Oesophageal varices haemorrhage [Recovering/Resolving]
  - Colitis ulcerative [Recovering/Resolving]
  - Herpes zoster [Recovering/Resolving]
  - Liver transplant [Recovering/Resolving]
  - Hepatic cirrhosis [Unknown]
  - Oesophageal varices haemorrhage [Recovering/Resolving]
  - Jaundice [Recovering/Resolving]
  - Colitis ulcerative [Recovering/Resolving]

NARRATIVE: CASE EVENT DATE: 19990412
